FAERS Safety Report 5113051-9 (Version None)
Quarter: 2006Q3

REPORT INFORMATION
  Report Type: 
  Country: None (occurrence: None)
  Receive Date: 20060922
  Receipt Date: 20060912
  Transmission Date: 20061208
  Serious: Yes (Hospitalization)
  Sender: FDA-Public Use
  Company Number: DE-BOEHRINGER INGELHEIM PHARMACEUTICALS, INC.-2006-DE-04896DE

PATIENT
  Sex: Female

DRUGS (2)
  1. SPIRIVA [Suspect]
     Route: 048
  2. BETA BLOCKING AGENT [Concomitant]

REACTIONS (3)
  - GALLBLADDER OPERATION [None]
  - INCORRECT ROUTE OF DRUG ADMINISTRATION [None]
  - MEDICATION ERROR [None]
